FAERS Safety Report 7353264-9 (Version None)
Quarter: 2011Q1

REPORT INFORMATION
  Report Type: 
  Country: None (occurrence: None)
  Receive Date: 20110310
  Receipt Date: 20110310
  Transmission Date: 20110831
  Serious: Yes (Hospitalization)
  Sender: FDA-Public Use
  Company Number: None

PATIENT
  Age: 22 Year
  Sex: Male
  Weight: 106.5953 kg

DRUGS (2)
  1. ATARAX [Suspect]
     Indication: ANXIETY
     Dosage: 25MG 3X A DAY  APPROX. 5 PLUS YEARS
  2. ATARAX [Suspect]
     Indication: PRURITUS
     Dosage: 25MG 3X A DAY  APPROX. 5 PLUS YEARS

REACTIONS (1)
  - PAROTITIS [None]
